FAERS Safety Report 17092357 (Version 2)
Quarter: 2020Q1

REPORT INFORMATION
  Report Type: Spontaneous
  Country: US (occurrence: US)
  Receive Date: 20191129
  Receipt Date: 20200103
  Transmission Date: 20200409
  Serious: Yes (Other)
  Sender: FDA-Public Use
  Company Number: US-ALLERGAN-1948002US

PATIENT
  Sex: Female

DRUGS (6)
  1. VRAYLAR [Suspect]
     Active Substance: CARIPRAZINE
     Dosage: UNK MG
     Route: 048
     Dates: end: 20190228
  2. VRAYLAR [Suspect]
     Active Substance: CARIPRAZINE
     Dosage: 1.5 MG, QD
     Route: 048
     Dates: start: 20190220, end: 20190222
  3. VRAYLAR [Suspect]
     Active Substance: CARIPRAZINE
     Dosage: 4.5 MG
     Route: 048
     Dates: start: 20190225
  4. VRAYLAR [Suspect]
     Active Substance: CARIPRAZINE
     Dosage: 6 MG
     Route: 048
     Dates: start: 20190227, end: 20190227
  5. VRAYLAR [Suspect]
     Active Substance: CARIPRAZINE
     Dosage: 3 MG, QD
     Route: 048
     Dates: start: 20190222, end: 20190225
  6. VRAYLAR [Suspect]
     Active Substance: CARIPRAZINE
     Indication: BIPOLAR I DISORDER
     Dosage: 1.5 MG
     Route: 048
     Dates: start: 20190930, end: 20191013

REACTIONS (8)
  - Hallucination, auditory [Recovered/Resolved]
  - Disturbance in attention [Recovered/Resolved]
  - Mania [Unknown]
  - Insomnia [Unknown]
  - Panic attack [Unknown]
  - Violence-related symptom [Recovered/Resolved]
  - Anxiety [Unknown]
  - Panic reaction [Unknown]

NARRATIVE: CASE EVENT DATE: 20190225
